FAERS Safety Report 9214976 (Version 2)
Quarter: 2013Q2

REPORT INFORMATION
  Report Type: Spontaneous
  Country: GB (occurrence: GB)
  Receive Date: 20130405
  Receipt Date: 20130626
  Transmission Date: 20140414
  Serious: Yes (Other)
  Sender: FDA-Public Use
  Company Number: GB-ASTRAZENECA-2013SE20378

PATIENT
  Age: 60 Year
  Sex: Female

DRUGS (14)
  1. SEROQUEL [Suspect]
     Route: 048
  2. AMLODIPINE [Suspect]
     Route: 065
  3. AMLODIPINE [Suspect]
     Route: 065
  4. ASPIRIN [Suspect]
     Route: 065
  5. ASPIRIN [Suspect]
     Route: 065
  6. DIAZEPAM [Suspect]
     Dosage: 2 MG, AS NECESSARY (AS REQUIRED)
     Route: 065
  7. PARACETAMOL [Suspect]
     Route: 065
  8. SERTRALINE [Suspect]
     Route: 065
  9. VENTOLINE [Suspect]
     Route: 065
  10. LEVOTHYROXINE [Suspect]
     Route: 065
  11. LEVOTHYROXINE [Suspect]
     Route: 065
  12. LEVOTHYROXINE [Suspect]
     Route: 065
  13. LITHIUM CARBONATE [Suspect]
     Dosage: 2 DF QPM
     Route: 065
  14. SIMVASTATIN [Concomitant]

REACTIONS (8)
  - Disturbance in attention [Unknown]
  - Cough [Unknown]
  - Salivary hypersecretion [Unknown]
  - Balance disorder [Unknown]
  - Radial nerve palsy [Unknown]
  - Swollen tongue [Unknown]
  - Tardive dyskinesia [Unknown]
  - Tremor [Unknown]
